FAERS Safety Report 18755314 (Version 1)
Quarter: 2021Q1

REPORT INFORMATION
  Report Type: Spontaneous
  Country: US (occurrence: US)
  Receive Date: 20210119
  Receipt Date: 20210119
  Transmission Date: 20210419
  Serious: Yes (Hospitalization)
  Sender: FDA-Public Use
  Company Number: US-ENDO PHARMACEUTICALS INC-2021-000087

PATIENT
  Age: 45 Year
  Sex: Female

DRUGS (1)
  1. HYDRALAZINE HYDROCHLORIDE. [Suspect]
     Active Substance: HYDRALAZINE HYDROCHLORIDE
     Indication: HYPERTENSION
     Dosage: UNK UNKNOWN, UNKNOWN
     Route: 065

REACTIONS (4)
  - Renal tubular injury [Recovering/Resolving]
  - Granulomatosis with polyangiitis [Recovered/Resolved]
  - Pneumonitis [Recovering/Resolving]
  - Pulmonary renal syndrome [Recovered/Resolved]
